FAERS Safety Report 4761198-9 (Version None)
Quarter: 2005Q3

REPORT INFORMATION
  Report Type: 
  Country: None (occurrence: None)
  Receive Date: 20050901
  Receipt Date: 20050824
  Transmission Date: 20060218
  Serious: Yes (Other)
  Sender: FDA-Public Use
  Company Number: 2005117220

PATIENT
  Sex: Female

DRUGS (2)
  1. CARDURA XL [Suspect]
     Indication: ILL-DEFINED DISORDER
     Dosage: 8 MG (8 MG, DAILY), ORAL
     Route: 048
  2. CARDURA [Suspect]
     Indication: ILL-DEFINED DISORDER
     Dosage: 4 MG (4 MG, 1 IN 24 HR), ORAL
     Route: 048

REACTIONS (2)
  - DIZZINESS [None]
  - HYPERTENSION [None]
